FAERS Safety Report 13600519 (Version 1)
Quarter: 2017Q2

REPORT INFORMATION
  Report Type: Spontaneous
  Country: US (occurrence: US)
  Receive Date: 20170531
  Receipt Date: 20170531
  Transmission Date: 20170830
  Serious: Yes (Hospitalization, Other)
  Sender: FDA-Public Use
  Company Number: None

PATIENT
  Age: 33 Year
  Sex: Female
  Weight: 51.75 kg

DRUGS (1)
  1. CIPRO [Suspect]
     Active Substance: CIPROFLOXACIN HYDROCHLORIDE
     Indication: URINARY TRACT INFECTION
     Dates: start: 20130630, end: 20130702

REACTIONS (5)
  - Erythema multiforme [None]
  - Tendon pain [None]
  - Myalgia [None]
  - Anxiety [None]
  - Hysterectomy [None]

NARRATIVE: CASE EVENT DATE: 20130703
